FAERS Safety Report 9289210 (Version 4)
Quarter: 2014Q1

REPORT INFORMATION
  Report Type: Report from Study
  Country: GB (occurrence: GB)
  Receive Date: 20130514
  Receipt Date: 20140102
  Transmission Date: 20141002
  Serious: Yes (Hospitalization)
  Sender: FDA-Public Use
  Company Number: GB-TEVA-398573USA

PATIENT
  Age: 73 Year
  Sex: Male
  Weight: 91 kg

DRUGS (13)
  1. BENDAMUSTINE [Suspect]
     Dosage: CYCLE 1
     Route: 042
     Dates: start: 20130426
  2. OFATUMUMAB [Suspect]
     Dosage: CYCLE 1
     Dates: start: 20130425
  3. PARACETAMOL [Concomitant]
  4. CHLORPHENIRAMINE [Concomitant]
  5. PREDNISOLONE [Concomitant]
  6. ALLOPURINOL [Concomitant]
  7. METOCLOPRAMIDE [Concomitant]
  8. ACICLOVIR [Concomitant]
  9. GRANULOCYTE COLONY-STIMULATING FACTOR NOS [Concomitant]
  10. CLARITHROMYCIN [Concomitant]
     Dosage: 1000 MILLIGRAM DAILY;
     Route: 048
     Dates: start: 20130402
  11. ENOXAPARIN [Concomitant]
     Dosage: 150 MILLIGRAM DAILY;
     Route: 058
  12. LATANOPROST [Concomitant]
     Dosage: .1 PERCENT DAILY;
  13. FLUCONAZOLE [Concomitant]
     Dosage: 50 MILLIGRAM DAILY;
     Route: 048
     Dates: start: 20130403

REACTIONS (2)
  - Lung consolidation [Recovered/Resolved]
  - Lung infection [Recovered/Resolved]
